FAERS Safety Report 9314588 (Version 3)
Quarter: 2013Q3

REPORT INFORMATION
  Report Type: Spontaneous
  Country: US (occurrence: US)
  Receive Date: 20130529
  Receipt Date: 20130729
  Transmission Date: 20140515
  Serious: Yes (Death, Other)
  Sender: FDA-Public Use
  Company Number: US-ASTELLAS-2013US005457

PATIENT
  Age: 74 Year
  Sex: Male

DRUGS (1)
  1. XTANDI [Suspect]
     Indication: PROSTATE CANCER METASTATIC
     Dosage: 160 MG, UID/QD
     Route: 065
     Dates: start: 20130501, end: 201305

REACTIONS (9)
  - Bedridden [Unknown]
  - Malignant neoplasm progression [Fatal]
  - Decreased appetite [Unknown]
  - Mucous stools [Unknown]
  - Depression [Unknown]
  - Skin burning sensation [Unknown]
  - Pain in extremity [Unknown]
  - Fatigue [Unknown]
  - White blood cell count decreased [Unknown]
